FAERS Safety Report 7386003-6 (Version None)
Quarter: 2011Q1

REPORT INFORMATION
  Report Type: 
  Country: None (occurrence: None)
  Receive Date: 20110329
  Receipt Date: 20110329
  Transmission Date: 20110831
  Serious: No
  Sender: FDA-Public Use
  Company Number: None

PATIENT
  Sex: Male
  Weight: 101 kg

DRUGS (1)
  1. FLEBOGAMMA [Suspect]
     Dosage: 30 GRAMS Q MONTHLY IV
     Route: 042
     Dates: start: 20110325, end: 20110325

REACTIONS (4)
  - HEART RATE INCREASED [None]
  - BLOOD PRESSURE ABNORMAL [None]
  - ANXIETY [None]
  - CHILLS [None]
